FAERS Safety Report 24443830 (Version 2)
Quarter: 2024Q4

REPORT INFORMATION
  Report Type: Report from Study
  Country: US (occurrence: US)
  Receive Date: 20241016
  Receipt Date: 20241017
  Transmission Date: 20250115
  Serious: No
  Sender: ROCHE
  Company Number: US-ROCHE-2100988

PATIENT
  Age: 65 Year
  Sex: Female

DRUGS (4)
  1. RITUXAN [Suspect]
     Active Substance: RITUXIMAB
     Indication: Neuromyelitis optica spectrum disorder
     Dosage: DAY 1 AND DAY 15, EVERY 6 MONTHS?DATE OF TREATMENT: 06/NOV/2018, 01/JUN/2018, 15/JUN/2018
     Route: 042
     Dates: start: 2011
  2. RITUXAN [Suspect]
     Active Substance: RITUXIMAB
     Indication: Multiple sclerosis
     Dosage: DOSE: 1000 MG ON DAY 1 AND DAY 15, EVERY 6 MONTH
     Route: 042
  3. RITUXAN [Suspect]
     Active Substance: RITUXIMAB
     Indication: Muscular weakness
  4. RITUXAN [Suspect]
     Active Substance: RITUXIMAB
     Indication: Myopathy

REACTIONS (2)
  - Off label use [Unknown]
  - Malaise [Unknown]
